FAERS Safety Report 9526442 (Version 2)
Quarter: 2013Q3

REPORT INFORMATION
  Report Type: Spontaneous
  Country: US (occurrence: US)
  Receive Date: 20130916
  Receipt Date: 20130916
  Transmission Date: 20140515
  Serious: No
  Sender: FDA-Public Use
  Company Number: US-PURDUE-USA-2011-0074471

PATIENT
  Age: 50 Year
  Sex: Female

DRUGS (1)
  1. DILAUDID INJECTION [Suspect]
     Indication: PAIN
     Dosage: 1 MG, Q3- 4H
     Route: 042

REACTIONS (3)
  - Groin pain [Unknown]
  - Abdominal pain [Unknown]
  - Pain [Unknown]
